FAERS Safety Report 4856628-8 (Version None)
Quarter: 2005Q4

REPORT INFORMATION
  Report Type: 
  Country: None (occurrence: None)
  Receive Date: 20051219
  Receipt Date: 20050110
  Transmission Date: 20060501
  Serious: No
  Sender: FDA-Public Use
  Company Number: US-GLAXOSMITHKLINE-A0539994A

PATIENT
  Age: 39 Year
  Sex: Male

DRUGS (1)
  1. NICODERM CQ [Suspect]

REACTIONS (4)
  - EYE SWELLING [None]
  - OCULAR HYPERAEMIA [None]
  - PAIN [None]
  - THERMAL BURN [None]
